FAERS Safety Report 20240416 (Version 1)
Quarter: 2021Q4

REPORT INFORMATION
  Report Type: Spontaneous
  Country: US (occurrence: None)
  Receive Date: 20211228
  Receipt Date: 20211228
  Transmission Date: 20220303
  Serious: Yes (Other)
  Sender: FDA-Public Use
  Company Number: None

PATIENT
  Age: 8 Year
  Sex: Male
  Weight: 42 kg

DRUGS (1)
  1. REMDESIVIR [Suspect]
     Active Substance: REMDESIVIR
     Dates: start: 20211206, end: 20211208

REACTIONS (3)
  - Vomiting [None]
  - Abnormal dreams [None]
  - Therapy interrupted [None]

NARRATIVE: CASE EVENT DATE: 20211206
